FAERS Safety Report 21061664 (Version 2)
Quarter: 2022Q4

REPORT INFORMATION
  Report Type: Spontaneous
  Country: SI (occurrence: SI)
  Receive Date: 20220709
  Receipt Date: 20221005
  Transmission Date: 20230113
  Serious: Yes (Death, Other)
  Sender: FDA-Public Use
  Company Number: SI-ROCHE-3103236

PATIENT
  Age: 56 Year
  Sex: Female
  Weight: 92 kg

DRUGS (29)
  1. BEVACIZUMAB [Suspect]
     Active Substance: BEVACIZUMAB
     Indication: Non-small cell lung cancer metastatic
     Dosage: 1380 MILLIGRAM
     Route: 065
     Dates: start: 20210609
  2. CARBOPLATIN [Suspect]
     Active Substance: CARBOPLATIN
     Indication: Non-small cell lung cancer
     Dosage: 600 MILLIGRAM
     Route: 065
     Dates: start: 20210609
  3. CARBOPLATIN [Suspect]
     Active Substance: CARBOPLATIN
     Indication: Non-small cell lung cancer metastatic
     Dosage: UNK
     Route: 065
     Dates: start: 20220307, end: 20220404
  4. PACLITAXEL [Suspect]
     Active Substance: PACLITAXEL
     Indication: Non-small cell lung cancer
     Dosage: 350 MILLIGRAM
     Route: 065
     Dates: start: 20210609
  5. PACLITAXEL [Suspect]
     Active Substance: PACLITAXEL
     Indication: Non-small cell lung cancer metastatic
  6. ATEZOLIZUMAB [Suspect]
     Active Substance: ATEZOLIZUMAB
     Indication: Non-small cell lung cancer
     Dosage: 1200 MILLIGRAM
     Route: 041
     Dates: start: 20210609
  7. ATEZOLIZUMAB [Suspect]
     Active Substance: ATEZOLIZUMAB
     Indication: Non-small cell lung cancer metastatic
  8. Nalgesin [Concomitant]
     Indication: Adverse event
     Dosage: UNK
  9. OLIVE OIL [Concomitant]
     Active Substance: OLIVE OIL
     Indication: Adverse event
     Dosage: UNK
     Dates: start: 20220221, end: 20220307
  10. REGLAN [Concomitant]
     Active Substance: METOCLOPRAMIDE HYDROCHLORIDE
     Indication: Adverse event
     Dosage: UNK
     Dates: start: 20220308
  11. REGLAN [Concomitant]
     Active Substance: METOCLOPRAMIDE HYDROCHLORIDE
     Dosage: UNK
     Dates: start: 20210703
  12. UREA [Concomitant]
     Active Substance: UREA
     Indication: Adverse event
     Dosage: UNK
     Dates: start: 20220221, end: 20220307
  13. MEDROL [Concomitant]
     Active Substance: METHYLPREDNISOLONE
     Indication: Adverse event
     Dosage: UNK, QD
     Dates: start: 20220328
  14. FOLIC ACID [Concomitant]
     Active Substance: FOLIC ACID
     Dosage: UNK, QD
     Dates: start: 20220301, end: 20220504
  15. ERLOTINIB [Concomitant]
     Active Substance: ERLOTINIB
     Dosage: UNK
     Dates: start: 20211209, end: 20220306
  16. MORPHINE [Concomitant]
     Active Substance: MORPHINE
     Dosage: 10 MILLIGRAM
     Dates: start: 20210630, end: 20220221
  17. ACETAMINOPHEN\TRAMADOL HYDROCHLORIDE [Concomitant]
     Active Substance: ACETAMINOPHEN\TRAMADOL HYDROCHLORIDE
     Indication: Adverse event
     Dosage: UNK
  18. KYTRIL [Concomitant]
     Active Substance: GRANISETRON HYDROCHLORIDE
     Indication: Adverse event
     Dosage: UNK
     Dates: start: 20220308
  19. KYTRIL [Concomitant]
     Active Substance: GRANISETRON HYDROCHLORIDE
     Dosage: UNK
     Dates: start: 20210703
  20. VINORELBINE [Concomitant]
     Active Substance: VINORELBINE TARTRATE
     Indication: Neoplasm malignant
     Dosage: UNK
  21. IRESSA [Concomitant]
     Active Substance: GEFITINIB
     Indication: Neoplasm malignant
     Dosage: UNK
  22. ZIEXTENZO [Concomitant]
     Active Substance: PEGFILGRASTIM-BMEZ
     Dosage: UNK, QD
     Dates: start: 20220301, end: 20220301
  23. VITAMIN B12 [Concomitant]
     Active Substance: CYANOCOBALAMIN
     Dosage: OTHER
     Dates: start: 20220301, end: 20220301
  24. PANTOPRAZOLE SODIUM [Concomitant]
     Active Substance: PANTOPRAZOLE SODIUM
     Dosage: UNK, QD
     Dates: start: 20220328
  25. QUETIAPINE FUMARATE [Concomitant]
     Active Substance: QUETIAPINE FUMARATE
     Dosage: UNK
     Dates: start: 20220504
  26. DEXAMETHASONE [Concomitant]
     Active Substance: DEXAMETHASONE
     Dosage: UNK UNK, QD
     Dates: start: 20220504
  27. CISPLATIN [Concomitant]
     Active Substance: CISPLATIN
     Indication: Neoplasm malignant
     Dosage: 150
  28. PEMETREXED [Concomitant]
     Active Substance: PEMETREXED
     Dosage: UNK UNK, QD
     Dates: start: 20220307, end: 20220307
  29. TAGRISSO [Concomitant]
     Active Substance: OSIMERTINIB
     Indication: Neoplasm malignant
     Dosage: UNK

REACTIONS (3)
  - Death [Fatal]
  - Hepatitis [Not Recovered/Not Resolved]
  - Fatigue [Recovered/Resolved]

NARRATIVE: CASE EVENT DATE: 20220308
